FAERS Safety Report 21157916 (Version 1)
Quarter: 2022Q3

REPORT INFORMATION
  Report Type: Report from Study
  Country: US (occurrence: US)
  Receive Date: 20220801
  Receipt Date: 20220801
  Transmission Date: 20221026
  Serious: Yes (Other)
  Sender: FDA-Public Use
  Company Number: US-TAKEDA-2022TUS013823

PATIENT
  Age: 57 Year
  Sex: Female

DRUGS (1)
  1. DEXLANSOPRAZOLE [Suspect]
     Active Substance: DEXLANSOPRAZOLE
     Indication: Product used for unknown indication
     Dosage: 60 MILLIGRAM, QD
     Route: 048

REACTIONS (11)
  - Surgery [Unknown]
  - Drug dependence [Unknown]
  - Illness [Recovering/Resolving]
  - Gastric disorder [Unknown]
  - Vomiting [Recovering/Resolving]
  - Therapy interrupted [Unknown]
  - Abdominal pain upper [Unknown]
  - Feeding disorder [Recovering/Resolving]
  - Ear pain [Unknown]
  - Headache [Unknown]
  - Oropharyngeal pain [Unknown]

NARRATIVE: CASE EVENT DATE: 20220728
